FAERS Safety Report 25708778 (Version 1)
Quarter: 2025Q3

REPORT INFORMATION
  Report Type: Report from Study
  Country: SA (occurrence: SA)
  Receive Date: 20250821
  Receipt Date: 20250821
  Transmission Date: 20251020
  Serious: Yes (Other)
  Sender: ROCHE
  Company Number: SA-ROCHE-10000365012

PATIENT

DRUGS (2)
  1. ATEZOLIZUMAB [Suspect]
     Active Substance: ATEZOLIZUMAB
     Indication: Hepatocellular carcinoma
     Route: 065
  2. BEVACIZUMAB [Suspect]
     Active Substance: BEVACIZUMAB
     Indication: Hepatocellular carcinoma
     Route: 065

REACTIONS (9)
  - Alanine aminotransferase increased [Unknown]
  - Decreased appetite [Unknown]
  - Aspartate aminotransferase increased [Unknown]
  - Confusional state [Unknown]
  - Constipation [Unknown]
  - Blood creatinine increased [Unknown]
  - Diarrhoea [Unknown]
  - Fatigue [Unknown]
  - Pruritus [Unknown]
